FAERS Safety Report 5256606-3 (Version None)
Quarter: 2007Q1

REPORT INFORMATION
  Report Type: 
  Country: None (occurrence: None)
  Receive Date: 20070306
  Receipt Date: 20070222
  Transmission Date: 20070707
  Serious: Yes (Other)
  Sender: FDA-Public Use
  Company Number: US-PFIZER INC-2006149317

PATIENT
  Sex: Female
  Weight: 62.1 kg

DRUGS (9)
  1. SINEQUAN [Suspect]
     Indication: SLEEP DISORDER
     Route: 048
     Dates: start: 19930101, end: 20061101
  2. SINEQUAN [Suspect]
     Indication: CHRONIC FATIGUE SYNDROME
  3. ATIVAN [Suspect]
  4. DOXEPIN HCL [Suspect]
     Indication: SLEEP DISORDER
  5. DOXEPIN HCL [Suspect]
     Indication: CHRONIC FATIGUE SYNDROME
  6. NEXIUM [Concomitant]
  7. ZYRTEC [Concomitant]
  8. NABUMETONE [Concomitant]
  9. CORGARD [Concomitant]
     Indication: HEART RATE IRREGULAR

REACTIONS (4)
  - COGNITIVE DISORDER [None]
  - DRUG INEFFECTIVE [None]
  - DRUG WITHDRAWAL SYNDROME [None]
  - HEART VALVE INSUFFICIENCY [None]
